FAERS Safety Report 10287310 (Version 3)
Quarter: 2014Q4

REPORT INFORMATION
  Report Type: Spontaneous
  Country: ES (occurrence: ES)
  Receive Date: 20140709
  Receipt Date: 20141009
  Transmission Date: 20150528
  Serious: Yes (Death, Hospitalization, Other)
  Sender: FDA-Public Use
  Company Number: ES-BRISTOL-MYERS SQUIBB COMPANY-21164066

PATIENT
  Age: 42 Year
  Sex: Female

DRUGS (5)
  1. PARACETAMOL [Concomitant]
     Active Substance: ACETAMINOPHEN
     Indication: PAIN IN EXTREMITY
     Dates: start: 2012
  2. OMEPRAZOLE. [Concomitant]
     Active Substance: OMEPRAZOLE
     Dates: start: 2012
  3. FUROSEMIDE. [Concomitant]
     Active Substance: FUROSEMIDE
     Indication: OEDEMA PERIPHERAL
     Dosage: 1 DF= 1TAB
     Dates: start: 2012
  4. YERVOY [Suspect]
     Active Substance: IPILIMUMAB
     Indication: MALIGNANT MELANOMA
     Dosage: IPILIMUMAB 3 MG/KG = 200 MG
     Dates: start: 20140217, end: 20140507
  5. GABAPENTINE [Concomitant]
     Active Substance: GABAPENTIN
     Indication: NEURALGIA
     Dates: start: 2013

REACTIONS (6)
  - Pancreatitis acute [Recovered/Resolved]
  - Nephrolithiasis [Unknown]
  - Cholelithiasis [Unknown]
  - Neurological examination abnormal [Fatal]
  - Diarrhoea [Not Recovered/Not Resolved]
  - Nausea [Not Recovered/Not Resolved]

NARRATIVE: CASE EVENT DATE: 20140219
